FAERS Safety Report 10683792 (Version 1)
Quarter: 2014Q4

REPORT INFORMATION
  Report Type: Spontaneous
  Country: IE (occurrence: IE)
  Receive Date: 20141230
  Receipt Date: 20141230
  Transmission Date: 20150529
  Serious: Yes (Other)
  Sender: FDA-Public Use
  Company Number: IE-PFIZER INC-2014355569

PATIENT
  Sex: Female

DRUGS (1)
  1. EFEXOR XL [Suspect]
     Active Substance: VENLAFAXINE HYDROCHLORIDE
     Indication: ANTIDEPRESSANT THERAPY
     Dosage: 112.5 MG, DAILY (37.5 MG AND 75 MG)

REACTIONS (6)
  - Dizziness [Unknown]
  - Nausea [Unknown]
  - Pain in extremity [Unknown]
  - Vision blurred [Unknown]
  - Depersonalisation [Unknown]
  - Fatigue [Unknown]

NARRATIVE: CASE EVENT DATE: 20141215
